FAERS Safety Report 6515069-8 (Version None)
Quarter: 2009Q4

REPORT INFORMATION
  Report Type: 
  Country: None (occurrence: None)
  Receive Date: 20091223
  Receipt Date: 20091210
  Transmission Date: 20100525
  Serious: Yes (Other)
  Sender: FDA-Public Use
  Company Number: FR-RANBAXY-2009RR-29603

PATIENT
  Age: 70 Year
  Sex: Female

DRUGS (7)
  1. LAMOTRIGINE [Suspect]
     Dosage: 50 MG, UNK
  2. PHENOBARBITAL [Suspect]
     Indication: EPILEPSY
     Dosage: 200 MG, UNK
  3. ZARONTIN [Suspect]
     Dosage: 75 MG, UNK
  4. DIPHENYLHYDANTOIN [Suspect]
     Dosage: 300 MG, UNK
  5. LEVETIRACETAM [Concomitant]
     Dosage: 100 MG, UNK
  6. CLONAZEPAM [Concomitant]
     Dosage: 4 MG, UNK
  7. LAMOTRIGINE [Concomitant]
     Dosage: 25 MG, UNK

REACTIONS (1)
  - DRUG RASH WITH EOSINOPHILIA AND SYSTEMIC SYMPTOMS [None]
